FAERS Safety Report 16747926 (Version 1)
Quarter: 2019Q3

REPORT INFORMATION
  Report Type: Spontaneous
  Country: CA (occurrence: CA)
  Receive Date: 20190827
  Receipt Date: 20190827
  Transmission Date: 20191005
  Serious: No
  Sender: FDA-Public Use
  Company Number: CA-BEH-2019105777

PATIENT
  Sex: Female

DRUGS (2)
  1. HIZENTRA [Suspect]
     Active Substance: HUMAN IMMUNOGLOBULIN G
     Dosage: 40 MILLILITER, QW
     Route: 065
     Dates: start: 2012
  2. ADVIL [IBUPROFEN] [Concomitant]
     Active Substance: IBUPROFEN
     Indication: PREMEDICATION

REACTIONS (4)
  - Administration site erythema [Unknown]
  - Tenderness [Unknown]
  - Infusion site mass [Unknown]
  - Administration site bruise [Unknown]
